FAERS Safety Report 9458176 (Version 1)
Quarter: 2013Q3

REPORT INFORMATION
  Report Type: Spontaneous
  Country: FR (occurrence: FR)
  Receive Date: 20130814
  Receipt Date: 20130814
  Transmission Date: 20140515
  Serious: Yes (Hospitalization)
  Sender: FDA-Public Use
  Company Number: PHHY2013FR086088

PATIENT
  Age: 45 Year
  Sex: Male

DRUGS (2)
  1. VOLTARENE [Suspect]
     Indication: BACK PAIN
     Dosage: 75/3 MG/ML, QD
     Route: 030
     Dates: start: 20130719, end: 20130722
  2. PARACETAMOL [Suspect]
     Indication: BACK PAIN
     Dosage: UNK UKN, UNK
     Route: 048
     Dates: start: 20130719, end: 20130722

REACTIONS (3)
  - Renal failure acute [Not Recovered/Not Resolved]
  - Oliguria [Unknown]
  - Anuria [Unknown]
